FAERS Safety Report 11878080 (Version 1)
Quarter: 2015Q4

REPORT INFORMATION
  Report Type: Spontaneous
  Country: US (occurrence: None)
  Receive Date: 20151229
  Receipt Date: 20151229
  Transmission Date: 20160305
  Serious: No
  Sender: FDA-Public Use
  Company Number: None

PATIENT
  Age: 59 Year
  Sex: Female

DRUGS (14)
  1. METHADONE [Concomitant]
     Active Substance: METHADONE HYDROCHLORIDE
  2. NIACIN. [Concomitant]
     Active Substance: NIACIN
  3. CELEXA [Concomitant]
     Active Substance: CITALOPRAM HYDROBROMIDE
  4. PRAVASTATIN [Concomitant]
     Active Substance: PRAVASTATIN\PRAVASTATIN SODIUM
  5. ETODOLAC. [Concomitant]
     Active Substance: ETODOLAC
  6. PREVACID [Concomitant]
     Active Substance: LANSOPRAZOLE
  7. MAGNESIUM [Concomitant]
     Active Substance: MAGNESIUM
  8. VITAMIN D [Concomitant]
     Active Substance: CHOLECALCIFEROL
  9. ATENOLOL. [Concomitant]
     Active Substance: ATENOLOL
  10. LOSARTAN POT [Concomitant]
     Active Substance: LOSARTAN POTASSIUM
  11. CAPECITABINE 500 MG TEVA [Suspect]
     Active Substance: CAPECITABINE
     Indication: BREAST CANCER
     Route: 048
     Dates: start: 20150619
  12. AVASTIN [Concomitant]
     Active Substance: BEVACIZUMAB
  13. PERCOCET [Concomitant]
     Active Substance: ACETAMINOPHEN\OXYCODONE HYDROCHLORIDE
  14. AROMASIN [Concomitant]
     Active Substance: EXEMESTANE

REACTIONS (5)
  - Dry skin [None]
  - Paraesthesia [None]
  - Onychoclasis [None]
  - Hypoaesthesia [None]
  - Skin fissures [None]

NARRATIVE: CASE EVENT DATE: 20151124
